FAERS Safety Report 11543781 (Version 2)
Quarter: 2015Q4

REPORT INFORMATION
  Report Type: Report from Study
  Country: US (occurrence: US)
  Receive Date: 20150924
  Receipt Date: 20151009
  Transmission Date: 20160304
  Serious: No
  Sender: FDA-Public Use
  Company Number: US-AMGEN-USASP2015096579

PATIENT
  Age: 50 Year
  Sex: Female

DRUGS (2)
  1. LEFLUNOMIDE. [Suspect]
     Active Substance: LEFLUNOMIDE
     Indication: PRODUCT USED FOR UNKNOWN INDICATION
     Dosage: UNK
     Route: 065
  2. ENBREL [Suspect]
     Active Substance: ETANERCEPT
     Indication: RHEUMATOID ARTHRITIS
     Dosage: 50 MG, QWK
     Route: 065
     Dates: start: 20150909

REACTIONS (13)
  - Increased tendency to bruise [Unknown]
  - Injection site erythema [Unknown]
  - Feeling abnormal [Unknown]
  - Head discomfort [Unknown]
  - Throat irritation [Unknown]
  - Injection site pruritus [Unknown]
  - Contusion [Unknown]
  - Malaise [Unknown]
  - Injection site urticaria [Unknown]
  - Headache [Recovered/Resolved]
  - Injection site reaction [Unknown]
  - Pruritus [Recovered/Resolved]
  - Injection site pain [Recovered/Resolved]

NARRATIVE: CASE EVENT DATE: 201509
